FAERS Safety Report 9695742 (Version 1)
Quarter: 2013Q4

REPORT INFORMATION
  Report Type: Spontaneous
  Country: US (occurrence: None)
  Receive Date: 20131118
  Receipt Date: 20131118
  Transmission Date: 20140711
  Serious: Yes (Hospitalization)
  Sender: FDA-Public Use
  Company Number: None

PATIENT
  Age: 52 Year
  Sex: Female
  Weight: 61 kg

DRUGS (7)
  1. ERTAPENEM [Suspect]
     Indication: URINARY TRACT INFECTION
     Route: 042
     Dates: start: 20130821, end: 20130822
  2. CLOPIDOGREL [Concomitant]
  3. HEPARIN [Concomitant]
  4. PANTOPRAZOLE [Concomitant]
  5. PIPERACILLIN/TAZOBACTAM [Concomitant]
  6. SIMVASTATIN [Concomitant]
  7. VANCOMYCIN [Concomitant]

REACTIONS (1)
  - Seizure like phenomena [None]
